FAERS Safety Report 13434711 (Version 1)
Quarter: 2017Q2

REPORT INFORMATION
  Report Type: Spontaneous
  Country: US (occurrence: US)
  Receive Date: 20170413
  Receipt Date: 20170413
  Transmission Date: 20170830
  Serious: Yes (Disabling, Other)
  Sender: FDA-Public Use
  Company Number: US-AMGEN-USASP2017053396

PATIENT
  Sex: Female

DRUGS (14)
  1. ENBREL [Suspect]
     Active Substance: ETANERCEPT
     Indication: PRODUCT USED FOR UNKNOWN INDICATION
     Dosage: UNK
     Route: 065
  2. SIMPONI [Concomitant]
     Active Substance: GOLIMUMAB
  3. HUMIRA [Concomitant]
     Active Substance: ADALIMUMAB
  4. CIMZIA [Concomitant]
     Active Substance: CERTOLIZUMAB PEGOL
  5. ACTEMRA [Concomitant]
     Active Substance: TOCILIZUMAB
  6. METHOTREXATE. [Concomitant]
     Active Substance: METHOTREXATE
  7. DUEXIS [Concomitant]
     Active Substance: FAMOTIDINE\IBUPROFEN
     Dosage: 26.6 TO 800 MG
     Route: 048
  8. ORENCIA [Concomitant]
     Active Substance: ABATACEPT
     Dosage: 125 MG, UNK
     Route: 058
  9. LUNESTA [Concomitant]
     Active Substance: ESZOPICLONE
     Dosage: 1 MG, UNK
     Route: 048
     Dates: start: 2016
  10. VOLTAREN [Concomitant]
     Active Substance: DICLOFENAC SODIUM
  11. CELEBREX [Concomitant]
     Active Substance: CELECOXIB
  12. ACETAMINOPHEN. [Concomitant]
     Active Substance: ACETAMINOPHEN
  13. RITUXAN [Concomitant]
     Active Substance: RITUXIMAB
  14. XELJANZ [Concomitant]
     Active Substance: TOFACITINIB CITRATE
     Dosage: 11 MG, UNK
     Route: 048

REACTIONS (13)
  - Rheumatoid arthritis [Unknown]
  - Urethral disorder [Unknown]
  - Headache [Unknown]
  - Fatigue [Unknown]
  - Erythema [Unknown]
  - Urinary incontinence [Unknown]
  - Ovarian cyst [Unknown]
  - Drug ineffective [Unknown]
  - Spinal osteoarthritis [Unknown]
  - Appendicectomy [Unknown]
  - Nausea [Unknown]
  - Rash [Unknown]
  - Shoulder operation [Unknown]

NARRATIVE: CASE EVENT DATE: 2016
